FAERS Safety Report 10660157 (Version 1)
Quarter: 2014Q4

REPORT INFORMATION
  Report Type: Spontaneous
  Country: US (occurrence: US)
  Receive Date: 20141217
  Receipt Date: 20141217
  Transmission Date: 20150529
  Serious: No
  Sender: FDA-Public Use
  Company Number: US-GLAXOSMITHKLINE-A1080418A

PATIENT

DRUGS (11)
  1. BENZOCAINE. [Suspect]
     Active Substance: BENZOCAINE
     Indication: PRODUCT USED FOR UNKNOWN INDICATION
     Route: 065
  2. METOPROLOL [Concomitant]
     Active Substance: METOPROLOL
  3. TORSEMIDE. [Concomitant]
     Active Substance: TORSEMIDE
  4. ASPIRIN. [Concomitant]
     Active Substance: ASPIRIN
  5. VERAPAMIL [Concomitant]
     Active Substance: VERAPAMIL HYDROCHLORIDE
  6. AMOXICILLIN. [Concomitant]
     Active Substance: AMOXICILLIN
  7. CALCIUM [Concomitant]
     Active Substance: CALCIUM
  8. VOTRIENT [Suspect]
     Active Substance: PAZOPANIB HYDROCHLORIDE
     Indication: RENAL CELL CARCINOMA
     Dosage: 200 MG, UNKNOWN DOSING200 MG, 3 TABLETS DAILY
     Route: 048
     Dates: start: 20140523
  9. ATORVASTATIN [Concomitant]
     Active Substance: ATORVASTATIN
  10. LEVOTHYROXINE [Concomitant]
     Active Substance: LEVOTHYROXINE
  11. VITAMINS [Concomitant]
     Active Substance: VITAMINS

REACTIONS (2)
  - Rash [Unknown]
  - Fatigue [Recovered/Resolved]

NARRATIVE: CASE EVENT DATE: 20140606
